FAERS Safety Report 5086977-2 (Version None)
Quarter: 2006Q3

REPORT INFORMATION
  Report Type: 
  Country: None (occurrence: None)
  Receive Date: 20060818
  Receipt Date: 20060802
  Transmission Date: 20061208
  Serious: Yes (Life-Threatening, Hospitalization)
  Sender: FDA-Public Use
  Company Number: 20063135

PATIENT
  Sex: Female

DRUGS (1)
  1. LIORESAL [Suspect]
     Indication: MUSCLE SPASTICITY
     Dosage: 735 MCG, DAILY, INTRATHECAL
     Route: 037

REACTIONS (10)
  - CONDITION AGGRAVATED [None]
  - DEVICE LEAKAGE [None]
  - DRUG INEFFECTIVE [None]
  - MUSCLE SPASMS [None]
  - MUSCLE SPASTICITY [None]
  - PARAESTHESIA [None]
  - PHARMACEUTICAL PRODUCT COMPLAINT [None]
  - PRURITUS [None]
  - PYREXIA [None]
  - URINARY TRACT INFECTION [None]
